FAERS Safety Report 8013760-8 (Version None)
Quarter: 2011Q4

REPORT INFORMATION
  Report Type: 
  Country: None (occurrence: None)
  Receive Date: 20111229
  Receipt Date: 20111216
  Transmission Date: 20120403
  Serious: Yes (Other)
  Sender: FDA-Public Use
  Company Number: JP-ELI_LILLY_AND_COMPANY-JP201112004898

PATIENT
  Age: 85 Year
  Sex: Female

DRUGS (6)
  1. FORTEO [Suspect]
     Route: 058
  2. SEROQUEL [Concomitant]
     Dosage: UNK
     Route: 065
  3. FAMOGAST [Concomitant]
     Route: 065
  4. LORAZEPAM [Concomitant]
     Route: 065
  5. AMLODIPINE [Concomitant]
     Route: 065
  6. TANATRIL [Concomitant]
     Route: 065

REACTIONS (1)
  - HYPERKALAEMIA [None]
